FAERS Safety Report 12469073 (Version 3)
Quarter: 2016Q3

REPORT INFORMATION
  Report Type: Report from Study
  Country: JP (occurrence: JP)
  Receive Date: 20160615
  Receipt Date: 20160721
  Transmission Date: 20161109
  Serious: Yes (Other)
  Sender: FDA-Public Use
  Company Number: JP-SA-2016SA109696

PATIENT
  Age: 62 Year
  Sex: Female

DRUGS (7)
  1. ASPIRIN. [Concomitant]
     Active Substance: ASPIRIN
  2. NEDAPLATIN [Concomitant]
     Active Substance: NEDAPLATIN
     Indication: OVARIAN CANCER RECURRENT
     Dosage: 6 COURSES
  3. LANSOPRAZOLE. [Concomitant]
     Active Substance: LANSOPRAZOLE
  4. ATORVASTATIN [Concomitant]
     Active Substance: ATORVASTATIN
  5. PACLITAXEL. [Interacting]
     Active Substance: PACLITAXEL
     Indication: OVARIAN CANCER RECURRENT
     Dosage: 6 COURSES; 96.0 MG PER WEEK
     Route: 065
  6. PLAVIX [Suspect]
     Active Substance: CLOPIDOGREL BISULFATE
     Indication: ANGINA PECTORIS
     Route: 065
  7. PACLITAXEL. [Interacting]
     Active Substance: PACLITAXEL
     Indication: OVARIAN CANCER RECURRENT
     Dosage: 5 COURSES; 96.0 MG PER WEEK
     Route: 065

REACTIONS (3)
  - Leukopenia [Unknown]
  - Drug interaction [Unknown]
  - Neutropenia [Unknown]
